FAERS Safety Report 4470804-8 (Version None)
Quarter: 2004Q4

REPORT INFORMATION
  Report Type: 
  Country: None (occurrence: None)
  Receive Date: 20041006
  Receipt Date: 20040929
  Transmission Date: 20050328
  Serious: No
  Sender: FDA-Public Use
  Company Number: 2004-120746-NL

PATIENT
  Age: 20 Year
  Sex: Male

DRUGS (7)
  1. PANCURONIUM [Suspect]
     Indication: ANAESTHESIA
     Dosage: INTRAVENOUS NOS
  2. OXYGEN [Concomitant]
  3. SECOBARBITAL [Concomitant]
  4. HYDROXYZINE [Concomitant]
  5. ATROPINE [Concomitant]
  6. INNOVAR [Concomitant]
  7. THIOPENTAL SODIUM [Concomitant]

REACTIONS (4)
  - ANAESTHETIC COMPLICATION [None]
  - BLOOD BICARBONATE INCREASED [None]
  - BLOOD CHLORIDE INCREASED [None]
  - TRISMUS [None]
